FAERS Safety Report 9781103 (Version 1)
Quarter: 2013Q4

REPORT INFORMATION
  Report Type: Spontaneous
  Country: US (occurrence: None)
  Receive Date: 20131220
  Receipt Date: 20131220
  Transmission Date: 20140711
  Serious: Yes (Other)
  Sender: FDA-Public Use
  Company Number: 2013P1021963

PATIENT
  Age: 76 Year
  Sex: Male

DRUGS (1)
  1. LEVOFLOXACIN [Suspect]
     Route: 048

REACTIONS (1)
  - Stasis dermatitis [None]
